FAERS Safety Report 6457745-1 (Version None)
Quarter: 2009Q4

REPORT INFORMATION
  Report Type: 
  Country: None (occurrence: None)
  Receive Date: 20091120
  Receipt Date: 20091106
  Transmission Date: 20100525
  Serious: Yes (Life-Threatening)
  Sender: FDA-Public Use
  Company Number: 2009S1000353

PATIENT
  Age: 57 Year
  Sex: Male

DRUGS (5)
  1. SORIATANE [Suspect]
     Indication: PSORIASIS
     Dosage: 20 MG;QD;PO;PO
     Route: 048
     Dates: start: 20040210, end: 20050315
  2. SORIATANE [Suspect]
     Indication: PSORIASIS
     Dosage: 20 MG;QD;PO;PO
     Route: 048
     Dates: start: 20061109
  3. METHOTREXATE [Suspect]
     Indication: PSORIASIS
     Dosage: 15 MG;QD;PO
     Route: 048
     Dates: start: 20050315, end: 20060913
  4. METHOTREXATE [Suspect]
     Indication: PSORIASIS
     Dosage: 15 MG;QD;PO
     Route: 048
     Dates: start: 20091110
  5. RAPTIVA [Suspect]
     Indication: PSORIASIS
     Dosage: 1 MG/KG/QW;SC
     Route: 058
     Dates: start: 20070123, end: 20070220

REACTIONS (1)
  - NON-HODGKIN'S LYMPHOMA [None]
